FAERS Safety Report 9300715 (Version 2)
Quarter: 2013Q2

REPORT INFORMATION
  Report Type: Spontaneous
  Country: US (occurrence: US)
  Receive Date: 20130521
  Receipt Date: 20130524
  Transmission Date: 20140414
  Serious: No
  Sender: FDA-Public Use
  Company Number: US-009507513-1305USA011325

PATIENT
  Sex: 0

DRUGS (1)
  1. DULERA [Suspect]
     Dosage: 200MCG/5MCG
     Route: 055

REACTIONS (2)
  - Product quality issue [Unknown]
  - Drug dose omission [Unknown]
